FAERS Safety Report 21033396 (Version 1)
Quarter: 2022Q2

REPORT INFORMATION
  Report Type: Spontaneous
  Country: US (occurrence: None)
  Receive Date: 20220630
  Receipt Date: 20220630
  Transmission Date: 20220721
  Serious: Yes (Other)
  Sender: FDA-Public Use
  Company Number: None

PATIENT
  Sex: Male
  Weight: 85.5 kg

DRUGS (18)
  1. REVLIMID [Suspect]
     Active Substance: LENALIDOMIDE
     Indication: Plasma cell myeloma
     Dosage: FREQUENCY : DAILY;?
     Route: 048
     Dates: start: 20220427
  2. TYLENOL [Concomitant]
     Active Substance: ACETAMINOPHEN
  3. ACYCLOVIR [Concomitant]
     Active Substance: ACYCLOVIR
  4. Allegra 180mg [Concomitant]
  5. ALLOPURINOL [Concomitant]
     Active Substance: ALLOPURINOL
  6. ASPIRIN [Concomitant]
     Active Substance: ASPIRIN
  7. VITAMIN B [Concomitant]
     Active Substance: VITAMIN B
  8. DEXAMETHASONE [Concomitant]
     Active Substance: DEXAMETHASONE
  9. FINASTERIDE [Concomitant]
     Active Substance: FINASTERIDE
  10. METFORMIN HYDROCHLORIDE [Concomitant]
     Active Substance: METFORMIN HYDROCHLORIDE
  11. METOPROLOL [Concomitant]
     Active Substance: METOPROLOL
  12. Multivitamin Adult [Concomitant]
  13. NIFEDIPINE [Concomitant]
     Active Substance: NIFEDIPINE
  14. OXYCODONE [Concomitant]
     Active Substance: OXYCODONE
  15. Probiotic 250mg [Concomitant]
  16. ROSUVASTATIN [Concomitant]
     Active Substance: ROSUVASTATIN
  17. TAMSULOSIN [Concomitant]
     Active Substance: TAMSULOSIN
  18. Velcade Injection 3.5mg [Concomitant]

REACTIONS (1)
  - Diarrhoea [None]
